FAERS Safety Report 14675586 (Version 1)
Quarter: 2018Q1

REPORT INFORMATION
  Report Type: Spontaneous
  Country: CA (occurrence: CA)
  Receive Date: 20180323
  Receipt Date: 20180323
  Transmission Date: 20180509
  Serious: Yes (Other)
  Sender: FDA-Public Use
  Company Number: CA-BAYER-2018-051985

PATIENT
  Age: 45 Year
  Sex: Female
  Weight: 56.69 kg

DRUGS (2)
  1. MIRENA [Suspect]
     Active Substance: LEVONORGESTREL
  2. MIRENA [Suspect]
     Active Substance: LEVONORGESTREL
     Indication: CONTRACEPTION
     Dosage: 20 MCG/24HR, CONT
     Route: 015

REACTIONS (24)
  - Mood swings [Recovering/Resolving]
  - Musculoskeletal disorder [Recovering/Resolving]
  - Nausea [Recovering/Resolving]
  - Amnesia [Recovering/Resolving]
  - Limb discomfort [Recovering/Resolving]
  - Vertigo positional [Recovering/Resolving]
  - Anxiety [Recovering/Resolving]
  - Depression [Recovering/Resolving]
  - Fatigue [Recovering/Resolving]
  - Feeling abnormal [Recovering/Resolving]
  - Alopecia [Recovering/Resolving]
  - Tendonitis [Recovering/Resolving]
  - Dyspareunia [Recovering/Resolving]
  - Gastrointestinal disorder [Recovering/Resolving]
  - Loss of libido [Recovering/Resolving]
  - Tachycardia [Recovering/Resolving]
  - Galactorrhoea [Recovering/Resolving]
  - Insomnia [Recovering/Resolving]
  - Disturbance in attention [Recovering/Resolving]
  - Nervousness [Recovering/Resolving]
  - Abdominal distension [Recovering/Resolving]
  - Apathy [Recovering/Resolving]
  - Emotional disorder [Recovering/Resolving]
  - Irritability [Recovering/Resolving]
